FAERS Safety Report 13990545 (Version 2)
Quarter: 2017Q4

REPORT INFORMATION
  Report Type: Spontaneous
  Country: US (occurrence: US)
  Receive Date: 20170920
  Receipt Date: 20171114
  Transmission Date: 20180321
  Serious: Yes (Other)
  Sender: FDA-Public Use
  Company Number: US-INCYTE CORPORATION-2017IN007745

PATIENT

DRUGS (1)
  1. JAKAFI [Suspect]
     Active Substance: RUXOLITINIB
     Indication: POLYCYTHAEMIA VERA
     Dosage: 15 MG (ONE 5 MG TABLET IN AM AND TWO 5 MG TABLETS IN PM)
     Route: 048
     Dates: start: 20120106

REACTIONS (9)
  - Headache [Unknown]
  - Dementia [Recovering/Resolving]
  - Confusional state [Recovering/Resolving]
  - Anaemia [Unknown]
  - Contusion [Unknown]
  - Femur fracture [Recovering/Resolving]
  - Dizziness [Unknown]
  - Incorrect dose administered [Recovering/Resolving]
  - Diarrhoea [Unknown]

NARRATIVE: CASE EVENT DATE: 20170823
